FAERS Safety Report 7498696-3 (Version None)
Quarter: 2011Q2

REPORT INFORMATION
  Report Type: 
  Country: None (occurrence: None)
  Receive Date: 20110524
  Receipt Date: 20110510
  Transmission Date: 20111010
  Serious: Yes (Other)
  Sender: FDA-Public Use
  Company Number: US-JNJFOC-20110504884

PATIENT
  Sex: Female
  Weight: 66.68 kg

DRUGS (1)
  1. REMICADE [Suspect]
     Indication: RHEUMATOID ARTHRITIS
     Route: 042
     Dates: start: 20110201

REACTIONS (6)
  - SWELLING FACE [None]
  - INFUSION RELATED REACTION [None]
  - DEPRESSION [None]
  - PRURITUS [None]
  - WEIGHT DECREASED [None]
  - HEADACHE [None]
